FAERS Safety Report 17547253 (Version 1)
Quarter: 2020Q1

REPORT INFORMATION
  Report Type: Spontaneous
  Country: GB (occurrence: GB)
  Receive Date: 20200316
  Receipt Date: 20200316
  Transmission Date: 20200409
  Serious: Yes (Other)
  Sender: FDA-Public Use
  Company Number: GB-BECTON DICKINSON-2020BDN00079

PATIENT
  Sex: Female

DRUGS (1)
  1. CHLORHEXIDINE [Suspect]
     Active Substance: CHLORHEXIDINE
     Route: 008

REACTIONS (3)
  - Incorrect route of product administration [Unknown]
  - Maternal exposure during pregnancy [Unknown]
  - Arachnoiditis [Unknown]
